FAERS Safety Report 6998094-2 (Version None)
Quarter: 2010Q3

REPORT INFORMATION
  Report Type: 
  Country: None (occurrence: None)
  Receive Date: 20100920
  Receipt Date: 20100723
  Transmission Date: 20110219
  Serious: No
  Sender: FDA-Public Use
  Company Number: US-ASTRAZENECA-2009UW21579

PATIENT
  Age: 59 Year
  Sex: Female
  Weight: 102.1 kg

DRUGS (7)
  1. SEROQUEL [Suspect]
     Indication: INSOMNIA
     Route: 048
     Dates: start: 20040101
  2. SEROQUEL [Suspect]
     Route: 048
     Dates: start: 20051228
  3. MONOPRIL [Concomitant]
     Dates: start: 20051228
  4. ZOLOFT [Concomitant]
     Dates: start: 20051228
  5. LORAZEPAM [Concomitant]
     Dates: start: 20051228
  6. HYDROCHLOROTHIAZIDE [Concomitant]
     Route: 048
     Dates: start: 20051228
  7. METFORMIN HCL [Concomitant]
     Dates: start: 20051228

REACTIONS (3)
  - OBESITY [None]
  - TYPE 2 DIABETES MELLITUS [None]
  - WEIGHT INCREASED [None]
